FAERS Safety Report 8437480-0 (Version None)
Quarter: 2012Q2

REPORT INFORMATION
  Report Type: 
  Country: None (occurrence: None)
  Receive Date: 20120614
  Receipt Date: 20120402
  Transmission Date: 20120825
  Serious: No
  Sender: FDA-Public Use
  Company Number: US-AMGEN-USASP2012020763

PATIENT
  Sex: Female

DRUGS (9)
  1. STATIN [Concomitant]
     Dosage: UNK
  2. PROLIA [Suspect]
     Indication: OSTEOPOROSIS
     Dosage: 60 MG, Q6MO
     Dates: start: 20120328
  3. POTASSIUM ACETATE [Concomitant]
     Dosage: UNK
  4. SYNTHROID [Concomitant]
     Dosage: UNK
  5. VITAMIN B-12 [Concomitant]
     Dosage: UNK
  6. MULTI-VITAMIN [Concomitant]
     Dosage: UNK
  7. BISOPROLOL FUMARATE [Concomitant]
     Dosage: UNK
  8. HYZAAR [Concomitant]
     Dosage: UNK
  9. CALTRATE WITH VITAMIN D [Concomitant]
     Dosage: UNK

REACTIONS (3)
  - PAIN [None]
  - ARTHRALGIA [None]
  - BACK PAIN [None]
